FAERS Safety Report 11942524 (Version 1)
Quarter: 2016Q1

REPORT INFORMATION
  Report Type: Spontaneous
  Country: US (occurrence: US)
  Receive Date: 20160125
  Receipt Date: 20160125
  Transmission Date: 20160526
  Serious: Yes (Hospitalization)
  Sender: FDA-Public Use
  Company Number: US-UNITED THERAPEUTICS-UNT-2015-006124

PATIENT
  Age: 33 Year
  Sex: Female
  Weight: 83.9 kg

DRUGS (4)
  1. REMODULIN [Suspect]
     Active Substance: TREPROSTINIL
     Indication: PULMONARY ARTERIAL HYPERTENSION
     Dosage: 0.046 ?G/KG/MIN, CONTINUING
     Route: 041
     Dates: start: 20090806
  2. REMODULIN [Suspect]
     Active Substance: TREPROSTINIL
     Dosage: 0.031 ?G/KG/MIN, CONTINUING
     Route: 041
     Dates: start: 20150610
  3. LETAIRIS [Suspect]
     Active Substance: AMBRISENTAN
     Indication: PULMONARY ARTERIAL HYPERTENSION
     Dosage: 5 MG, QD
     Dates: start: 200912
  4. ORENITRAM [Suspect]
     Active Substance: TREPROSTINIL
     Indication: PRODUCT USED FOR UNKNOWN INDICATION
     Dosage: 3 MG, TID
     Route: 048
     Dates: start: 20150610

REACTIONS (7)
  - Nausea [Unknown]
  - Headache [Unknown]
  - Injection site erythema [Unknown]
  - Injection site pruritus [Unknown]
  - Wheezing [Unknown]
  - Dysphonia [Unknown]
  - Fatigue [Unknown]

NARRATIVE: CASE EVENT DATE: 201505
